FAERS Safety Report 5001545-6 (Version None)
Quarter: 2006Q2

REPORT INFORMATION
  Report Type: 
  Country: None (occurrence: None)
  Receive Date: 20060511
  Receipt Date: 20060424
  Transmission Date: 20061013
  Serious: Yes (Other)
  Sender: FDA-Public Use
  Company Number: DSA_70900_2006

PATIENT
  Age: 29 Year
  Sex: Female

DRUGS (1)
  1. AZATHIOPRINE [Suspect]
     Indication: VASCULITIS
     Dosage: DF

REACTIONS (7)
  - C-REACTIVE PROTEIN INCREASED [None]
  - DRUG HYPERSENSITIVITY [None]
  - MALAISE [None]
  - MYALGIA [None]
  - NAUSEA [None]
  - PYREXIA [None]
  - VOMITING [None]
